FAERS Safety Report 15739088 (Version 4)
Quarter: 2019Q4

REPORT INFORMATION
  Report Type: Spontaneous
  Country: JP (occurrence: JP)
  Receive Date: 20181219
  Receipt Date: 20191003
  Transmission Date: 20200122
  Serious: Yes (Hospitalization, Other)
  Sender: FDA-Public Use
  Company Number: JP-009507513-1812JPN001753J

PATIENT
  Age: 67 Year
  Sex: Male
  Weight: 56 kg

DRUGS (7)
  1. PHENOBAL [Concomitant]
     Active Substance: PHENOBARBITAL
     Dosage: 60 MILLIGRAM, QD
     Route: 048
     Dates: start: 20181026
  2. LANSOPRAZOLE. [Concomitant]
     Active Substance: LANSOPRAZOLE
     Indication: PROPHYLAXIS
     Dosage: 15 MILLIGRAM, QD
     Route: 048
     Dates: start: 20181024, end: 20190106
  3. CARBAZOCHROME SULFONATE NA [Concomitant]
     Indication: TUMOUR HAEMORRHAGE
     Dosage: 90 MILLIGRAM, BID
     Route: 048
     Dates: start: 20181020
  4. KEYTRUDA [Suspect]
     Active Substance: PEMBROLIZUMAB
     Indication: NON-SMALL CELL LUNG CANCER
     Dosage: 200 MILLIGRAM, Q3W
     Route: 041
     Dates: start: 20181121, end: 20181121
  5. LACOSAMIDE. [Concomitant]
     Active Substance: LACOSAMIDE
     Indication: SEIZURE
     Dosage: 150 MILLIGRAM, BID
     Route: 048
     Dates: start: 20181009
  6. E KEPPRA [Concomitant]
     Active Substance: LEVETIRACETAM
     Dosage: 1000 MILLIGRAM, BID
     Route: 048
     Dates: start: 20181024
  7. TRANSAMIN [Concomitant]
     Active Substance: TRANEXAMIC ACID
     Indication: TUMOUR HAEMORRHAGE
     Dosage: 750 MILLIGRAM, BID
     Route: 048
     Dates: start: 20181020

REACTIONS (3)
  - Febrile neutropenia [Recovered/Resolved]
  - Rash erythematous [Recovered/Resolved]
  - Pharyngeal inflammation [Recovered/Resolved]

NARRATIVE: CASE EVENT DATE: 20181212
